FAERS Safety Report 7271884-7 (Version None)
Quarter: 2011Q1

REPORT INFORMATION
  Report Type: 
  Country: None (occurrence: None)
  Receive Date: 20110127
  Receipt Date: 20110114
  Transmission Date: 20110831
  Serious: Yes (Other)
  Sender: FDA-Public Use
  Company Number: 2011AT000024

PATIENT
  Age: 70 Year
  Sex: Male

DRUGS (3)
  1. LOSARTAN (LOSARTAN) [Suspect]
  2. THEOPHYLLINE [Suspect]
     Dosage: 400 MG
  3. CIMETIDINE [Suspect]

REACTIONS (6)
  - BLOOD PRESSURE INCREASED [None]
  - GRAND MAL CONVULSION [None]
  - PYREXIA [None]
  - LEUKOCYTOSIS [None]
  - HEART RATE IRREGULAR [None]
  - ALTERED STATE OF CONSCIOUSNESS [None]
